FAERS Safety Report 5775862-6 (Version None)
Quarter: 2008Q2

REPORT INFORMATION
  Report Type: 
  Country: None (occurrence: None)
  Receive Date: 20080617
  Receipt Date: 20080605
  Transmission Date: 20081010
  Serious: Yes (Hospitalization, Disabling, Other)
  Sender: FDA-Public Use
  Company Number: US-PFIZER INC-2008046248

PATIENT
  Sex: Female
  Weight: 59 kg

DRUGS (3)
  1. CHANTIX [Suspect]
     Indication: SMOKING CESSATION THERAPY
     Route: 048
     Dates: start: 20080416, end: 20080420
  2. TRAMADOL HCL [Concomitant]
  3. ULTRAM [Concomitant]
     Route: 048

REACTIONS (8)
  - AMNESIA [None]
  - BRAIN OEDEMA [None]
  - COMA [None]
  - CONVULSION [None]
  - FRACTURE [None]
  - HAEMORRHAGE INTRACRANIAL [None]
  - IMPAIRED WORK ABILITY [None]
  - SKULL FRACTURE [None]
